FAERS Safety Report 5671353-1 (Version None)
Quarter: 2008Q1

REPORT INFORMATION
  Report Type: 
  Country: None (occurrence: None)
  Receive Date: 20080318
  Receipt Date: 20080306
  Transmission Date: 20080703
  Serious: Yes (Hospitalization, Other)
  Sender: FDA-Public Use
  Company Number: US-PFIZER INC-2008018421

PATIENT
  Sex: Female
  Weight: 66.2 kg

DRUGS (7)
  1. CHANTIX [Suspect]
     Indication: EX-SMOKER
     Route: 048
     Dates: start: 20080201, end: 20080201
  2. ACETYLSALICYLIC ACID [Concomitant]
  3. LORTAB [Concomitant]
     Indication: PAIN
  4. ZANTAC [Concomitant]
     Indication: GASTRIC DISORDER
     Route: 048
  5. KLONOPIN [Concomitant]
     Route: 048
  6. PROZAC [Concomitant]
     Route: 048
  7. ALL OTHER THERAPEUTIC PRODUCTS [Concomitant]

REACTIONS (7)
  - ANXIETY [None]
  - BIPOLAR I DISORDER [None]
  - CHEST DISCOMFORT [None]
  - CHEST PAIN [None]
  - HYPERTENSION [None]
  - HYPOTENSION [None]
  - PANIC ATTACK [None]
